FAERS Safety Report 10227457 (Version 1)
Quarter: 2014Q2

REPORT INFORMATION
  Report Type: Spontaneous
  Country: JP (occurrence: JP)
  Receive Date: 20140610
  Receipt Date: 20140610
  Transmission Date: 20141212
  Serious: Yes (Other)
  Sender: FDA-Public Use
  Company Number: PHHY2014JP066350

PATIENT
  Age: 74 Year
  Sex: Female

DRUGS (2)
  1. NILOTINIB [Suspect]
     Indication: CHRONIC MYELOID LEUKAEMIA
     Dosage: 200 MG, BID
     Route: 048
  2. NILOTINIB [Suspect]
     Dosage: 300 MG, BID
     Route: 048

REACTIONS (3)
  - Haemorrhagic hepatic cyst [Unknown]
  - Anaemia [Unknown]
  - Abdominal pain [Unknown]
